FAERS Safety Report 22155571 (Version 3)
Quarter: 2024Q4

REPORT INFORMATION
  Report Type: Spontaneous
  Country: JP (occurrence: JP)
  Receive Date: 20230330
  Receipt Date: 20241227
  Transmission Date: 20250115
  Serious: Yes (Hospitalization, Other)
  Sender: ABBVIE
  Company Number: JP-ABBVIE-4710145

PATIENT
  Age: 69 Year
  Sex: Male
  Weight: 57 kg

DRUGS (8)
  1. HUMIRA [Suspect]
     Active Substance: ADALIMUMAB
     Indication: Colitis ulcerative
     Dosage: DURATION TEXT: ABOUT A YEAR, FORM STRENGTH: 40 MILLIGRAMS
     Route: 058
     Dates: start: 20220622, end: 20230222
  2. HUMIRA [Suspect]
     Active Substance: ADALIMUMAB
     Dosage: LAST ADMIN TEXT 2022?FORM STRENGTH: 40 MILLIGRAMS
     Route: 058
     Dates: start: 20220525
  3. HUMIRA [Suspect]
     Active Substance: ADALIMUMAB
     Dosage: FORM STRENGTH: 40 MILLIGRAMS
     Route: 058
     Dates: start: 20221012, end: 20230222
  4. BIFIDOBACTERIUM LONGUM [Concomitant]
     Active Substance: BIFIDOBACTERIUM LONGUM
     Indication: Colitis ulcerative
     Dosage: TIME INTERVAL: 0.33333333 DAYS: 6 TABLET
     Route: 048
     Dates: start: 20230218, end: 20230302
  5. PREDNISOLONE [Suspect]
     Active Substance: PREDNISOLONE
     Indication: Colitis ulcerative
     Dosage: FORM STRENGTH: 5 MILLIGRAMS
     Route: 048
     Dates: start: 20220506, end: 20220512
  6. METRONIDAZOLE [Concomitant]
     Active Substance: METRONIDAZOLE
     Indication: Colitis ulcerative
     Dosage: FORM STRENGTH: 250 MILLIGRAM
     Route: 048
     Dates: start: 20220525, end: 20220607
  7. CLOSTRIDIUM BUTYRICUM [Concomitant]
     Indication: Colitis ulcerative
     Dosage: TIME INTERVAL: 0.33333333 DAYS: 3 GRAM
     Route: 048
     Dates: start: 20230304
  8. MESALAMINE [Concomitant]
     Active Substance: MESALAMINE
     Indication: Colitis ulcerative
     Dosage: 4000 MILLIGRAM?FORM STRENGTH: 500 MILLIGRAMS
     Route: 065
     Dates: start: 20220507, end: 20220525

REACTIONS (9)
  - Decreased appetite [Recovering/Resolving]
  - Peritoneal tuberculosis [Recovering/Resolving]
  - Tuberculosis [Unknown]
  - Infection [Unknown]
  - Herpes zoster [Recovered/Resolved with Sequelae]
  - Ascites [Recovering/Resolving]
  - Pseudomembranous colitis [Unknown]
  - Upper respiratory tract inflammation [Unknown]
  - Pleural effusion [Unknown]

NARRATIVE: CASE EVENT DATE: 20221217
